FAERS Safety Report 5986686-9 (Version None)
Quarter: 2008Q4

REPORT INFORMATION
  Report Type: 
  Country: None (occurrence: None)
  Receive Date: 20081209
  Receipt Date: 20081205
  Transmission Date: 20090506
  Serious: Yes (Hospitalization)
  Sender: FDA-Public Use
  Company Number: ES-KINGPHARMUSA00001-K200801377

PATIENT
  Age: 82 Year
  Sex: Female
  Weight: 80 kg

DRUGS (4)
  1. AVINZA [Suspect]
     Indication: PAIN
     Dosage: 10 MG, QD
  2. GABAPENTIN [Suspect]
     Indication: BACK PAIN
     Dosage: 600 MG, TID
  3. GABAPENTIN [Suspect]
     Dosage: 300 MG, TID
  4. GABAPENTIN [Suspect]
     Dosage: 1200 MG, UNK

REACTIONS (9)
  - CHOREA [None]
  - CONFUSIONAL STATE [None]
  - DISORIENTATION [None]
  - DRUG INTERACTION [None]
  - HALLUCINATION, VISUAL [None]
  - INSOMNIA [None]
  - MYOCLONUS [None]
  - PSYCHOTIC DISORDER [None]
  - RENAL IMPAIRMENT [None]
